FAERS Safety Report 7894227-4 (Version None)
Quarter: 2011Q4

REPORT INFORMATION
  Report Type: 
  Country: None (occurrence: None)
  Receive Date: 20111104
  Receipt Date: 20111028
  Transmission Date: 20120403
  Serious: Yes (Other)
  Sender: FDA-Public Use
  Company Number: US-US-EMD SERONO, INC.-7091314

PATIENT
  Sex: Female
  Weight: 77 kg

DRUGS (3)
  1. REBIF [Suspect]
     Dosage: INCREASED FROM 22 MCG TO 44 MCG ON UNKNOWN DATE
     Dates: start: 20110909
  2. REBIF [Suspect]
     Route: 058
  3. REBIF [Suspect]
     Indication: PRODUCT USED FOR UNKNOWN INDICATION
     Dates: start: 20050101

REACTIONS (2)
  - INJECTION SITE PAIN [None]
  - DIABETES MELLITUS [None]
